FAERS Safety Report 24622244 (Version 1)
Quarter: 2024Q4

REPORT INFORMATION
  Report Type: Spontaneous
  Country: JP (occurrence: JP)
  Receive Date: 20241114
  Receipt Date: 20241114
  Transmission Date: 20250115
  Serious: Yes (Hospitalization, Other)
  Sender: BRISTOL-MYERS SQUIBB COMPANY
  Company Number: JP-BRISTOL-MYERS SQUIBB COMPANY-2024-115575

PATIENT
  Age: 57 Year
  Sex: Male

DRUGS (1)
  1. ABECMA [Suspect]
     Active Substance: IDECABTAGENE VICLEUCEL
     Indication: Plasma cell myeloma refractory
     Route: 042

REACTIONS (7)
  - Cytokine release syndrome [Recovering/Resolving]
  - Reduced facial expression [Unknown]
  - Tremor [Unknown]
  - Bradykinesia [Unknown]
  - Freezing phenomenon [Unknown]
  - Balance disorder [Unknown]
  - Micrographia [Unknown]
